FAERS Safety Report 15793742 (Version 1)
Quarter: 2019Q1

REPORT INFORMATION
  Report Type: Spontaneous
  Country: DE (occurrence: DE)
  Receive Date: 20190107
  Receipt Date: 20190107
  Transmission Date: 20190417
  Serious: Yes (Hospitalization)
  Sender: FDA-Public Use
  Company Number: DE-OTSUKA-2019_000311

PATIENT

DRUGS (1)
  1. JINARC [Suspect]
     Active Substance: TOLVAPTAN
     Indication: PRODUCT USED FOR UNKNOWN INDICATION
     Dosage: UNK, 15/45
     Route: 065
     Dates: end: 20181210

REACTIONS (2)
  - Dyspnoea exertional [Recovering/Resolving]
  - Right ventricular failure [Unknown]

NARRATIVE: CASE EVENT DATE: 201810
